APPROVED DRUG PRODUCT: NOVANTRONE
Active Ingredient: MITOXANTRONE HYDROCHLORIDE
Strength: EQ 25MG BASE/12.5ML (EQ 2MG BASE/ML) **Federal Register determination that product was not discontinued or withdrawn for safety or effectiveness reasons**
Dosage Form/Route: INJECTABLE;INJECTION
Application: N019297 | Product #002
Applicant: EMD SERONO INC
Approved: Dec 23, 1987 | RLD: Yes | RS: No | Type: DISCN